FAERS Safety Report 15981123 (Version 1)
Quarter: 2019Q1

REPORT INFORMATION
  Report Type: Spontaneous
  Country: US (occurrence: US)
  Receive Date: 20190219
  Receipt Date: 20190219
  Transmission Date: 20190418
  Serious: Yes (Life-Threatening, Hospitalization)
  Sender: FDA-Public Use
  Company Number: US-ELI_LILLY_AND_COMPANY-US201902005045

PATIENT
  Age: 80 Year
  Sex: Male
  Weight: 75 kg

DRUGS (5)
  1. INSULIN GLARGINE [Concomitant]
     Active Substance: INSULIN GLARGINE
     Indication: DIABETES MELLITUS
     Dosage: 5 U, DAILY AT NIGHT
     Route: 058
     Dates: start: 20100507
  2. FUROSEMIDE. [Concomitant]
     Active Substance: FUROSEMIDE
     Indication: PERIPHERAL SWELLING
     Dosage: UNK
     Dates: start: 20181011
  3. HUMALOG [Suspect]
     Active Substance: INSULIN LISPRO
     Indication: DIABETES MELLITUS
     Dosage: 5 U, TID
     Route: 058
     Dates: start: 20130123
  4. POTASSIUM [POTASSIUM CHLORIDE] [Concomitant]
     Indication: OEDEMA
     Dosage: UNK
     Dates: start: 20181024
  5. SIMVASTATIN. [Concomitant]
     Active Substance: SIMVASTATIN
     Indication: HYPERCHOLESTEROLAEMIA
     Dosage: UNK
     Dates: start: 20081021

REACTIONS (8)
  - Hypothermia [Recovered/Resolved]
  - Hypoglycaemia [Recovered/Resolved]
  - Glycosylated haemoglobin increased [Recovered/Resolved]
  - Agitation [Recovered/Resolved]
  - Blood lactic acid increased [Recovered/Resolved]
  - Somnolence [Recovered/Resolved]
  - Syncope [Recovered/Resolved]
  - Mass [Recovered/Resolved]

NARRATIVE: CASE EVENT DATE: 20190114
